FAERS Safety Report 18398255 (Version 2)
Quarter: 2020Q4

REPORT INFORMATION
  Report Type: Spontaneous
  Country: SE (occurrence: SE)
  Receive Date: 20201019
  Receipt Date: 20201029
  Transmission Date: 20210114
  Serious: Yes (Other)
  Sender: FDA-Public Use
  Company Number: SE-TEVA-2020-SE-1838747

PATIENT
  Age: 67 Year
  Sex: Male

DRUGS (8)
  1. ABASAGLAR [Concomitant]
     Active Substance: INSULIN GLARGINE
  2. AMLODIPINE [Suspect]
     Active Substance: AMLODIPINE BESYLATE
     Indication: ESSENTIAL HYPERTENSION
     Route: 048
     Dates: start: 2018, end: 2020
  3. BETAPRED [Concomitant]
     Active Substance: BETAMETHASONE SODIUM PHOSPHATE
     Dosage: IF NECESSARY
  4. CRESTOR [Concomitant]
     Active Substance: ROSUVASTATIN CALCIUM
  5. LORATADIN [Concomitant]
     Active Substance: LORATADINE
     Dosage: IF NECESSARY
  6. ENALAPRIL [Concomitant]
     Active Substance: ENALAPRIL
  7. METFORMIN [Concomitant]
     Active Substance: METFORMIN HYDROCHLORIDE
  8. HYDROKLORTIAZID [Concomitant]

REACTIONS (1)
  - Peripheral swelling [Recovered/Resolved]

NARRATIVE: CASE EVENT DATE: 20200709
